FAERS Safety Report 9881961 (Version 2)
Quarter: 2014Q1

REPORT INFORMATION
  Report Type: Report from Study
  Country: FR (occurrence: FR)
  Receive Date: 20140207
  Receipt Date: 20140220
  Transmission Date: 20141002
  Serious: Yes (Hospitalization)
  Sender: FDA-Public Use
  Company Number: PHHO2014FR001768

PATIENT
  Sex: 0

DRUGS (4)
  1. STI571 [Suspect]
     Indication: ACUTE LYMPHOCYTIC LEUKAEMIA
     Dosage: 600 MG, UNK
     Route: 048
     Dates: start: 20080124, end: 20080213
  2. TASIGNA [Concomitant]
     Indication: LEUKAEMIA
     Dosage: 400 MG, BID
     Dates: start: 20080214
  3. TASIGNA [Concomitant]
     Dosage: 200 MG, BID
     Dates: start: 20110317
  4. SPRYCEL//DASATINIB [Concomitant]
     Dosage: UNK
     Dates: start: 20080214, end: 20080924

REACTIONS (2)
  - Skin cancer [Recovered/Resolved]
  - Second primary malignancy [Recovered/Resolved]
